FAERS Safety Report 8571264-8 (Version None)
Quarter: 2012Q3

REPORT INFORMATION
  Report Type: 
  Country: None (occurrence: None)
  Receive Date: 20120730
  Receipt Date: 20120730
  Transmission Date: 20120928
  Serious: Yes (Hospitalization, Other)
  Sender: FDA-Public Use
  Company Number: None

PATIENT
  Age: 75 Year
  Sex: Male
  Weight: 86.7 kg

DRUGS (1)
  1. CAPECITABINE [Suspect]
     Indication: NEOPLASM MALIGNANT
     Dosage: 1500 MG, BID, PO
     Route: 048
     Dates: start: 20120605

REACTIONS (5)
  - ABDOMINAL PAIN [None]
  - DIARRHOEA [None]
  - MUSCLE SPASMS [None]
  - NAUSEA [None]
  - VOMITING [None]
